FAERS Safety Report 7721552-X (Version None)
Quarter: 2011Q3

REPORT INFORMATION
  Report Type: 
  Country: None (occurrence: None)
  Receive Date: 20110831
  Receipt Date: 20110822
  Transmission Date: 20111222
  Serious: Yes (Other)
  Sender: FDA-Public Use
  Company Number: JP-ASTRAZENECA-2011SE31050

PATIENT
  Age: 64 Year
  Sex: Male
  Weight: 62 kg

DRUGS (7)
  1. OMEPRAZOLE [Suspect]
     Indication: ASTHMA
     Route: 048
     Dates: start: 20110317, end: 20110325
  2. PREDNISOLONE [Concomitant]
     Route: 048
     Dates: start: 20110325, end: 20110328
  3. SYMBICORT [Suspect]
     Indication: ASTHMA
     Route: 055
     Dates: start: 20110317, end: 20110325
  4. ZITHROMAX [Concomitant]
     Indication: BRONCHITIS
     Route: 048
     Dates: start: 20110317, end: 20110317
  5. ALBUTEROL SULFATE [Concomitant]
     Route: 055
  6. PREDNISOLONE [Concomitant]
     Indication: ASTHMA
     Route: 048
     Dates: start: 20110317, end: 20110321
  7. SINGULAIR [Concomitant]
     Indication: ASTHMA
     Route: 048
     Dates: start: 20110317, end: 20110330

REACTIONS (5)
  - DYSPHONIA [None]
  - SWELLING FACE [None]
  - ERYTHEMA MULTIFORME [None]
  - OROPHARYNGEAL PAIN [None]
  - OEDEMA MOUTH [None]
